FAERS Safety Report 4716587-5 (Version None)
Quarter: 2005Q3

REPORT INFORMATION
  Report Type: 
  Country: None (occurrence: None)
  Receive Date: 20050713
  Receipt Date: 20050608
  Transmission Date: 20060218
  Serious: Yes (Hospitalization, Other)
  Sender: FDA-Public Use
  Company Number: 2005085319

PATIENT
  Age: 73 Year
  Sex: Male

DRUGS (3)
  1. LIPITOR [Suspect]
     Indication: HYPERCHOLESTEROLAEMIA
     Dosage: 20 MG (20 MG, 1 IN 1 D), ORAL
     Route: 048
  2. INDAPAMIDE [Suspect]
     Indication: HYPERTENSION
     Dosage: 2.5 MG (1 IN 1 D), ORAL
     Route: 048
  3. ENALAPRIL MALEATE [Suspect]
     Indication: HYPERTENSION
     Dosage: 20 MG (1 IN 1 D), ORAL
     Route: 048

REACTIONS (16)
  - ANAEMIA [None]
  - BENIGN PROSTATIC HYPERPLASIA [None]
  - BLADDER DISORDER [None]
  - CEREBRAL ISCHAEMIA [None]
  - ENDOCARDITIS [None]
  - FATIGUE [None]
  - GENERAL PHYSICAL HEALTH DETERIORATION [None]
  - ISCHAEMIA [None]
  - PYELECTASIA [None]
  - PYREXIA [None]
  - RASH GENERALISED [None]
  - RASH PRURITIC [None]
  - RENAL FAILURE [None]
  - SPEECH DISORDER [None]
  - STREPTOCOCCAL INFECTION [None]
  - URETHRAL DISORDER [None]
